FAERS Safety Report 18715315 (Version 3)
Quarter: 2021Q3

REPORT INFORMATION
  Report Type: Spontaneous
  Country: PL (occurrence: PL)
  Receive Date: 20210108
  Receipt Date: 20210728
  Transmission Date: 20211014
  Serious: Yes (Death, Life-Threatening, Hospitalization, Congenital Anomaly, Other)
  Sender: FDA-Public Use
  Company Number: PL-SUN PHARMACEUTICAL INDUSTRIES LTD-2020RR-274637

PATIENT
  Sex: Female
  Weight: 1.13 kg

DRUGS (3)
  1. IBUPROFEN. [Suspect]
     Active Substance: IBUPROFEN
     Indication: FOETAL EXPOSURE DURING PREGNANCY
     Dosage: CAPSULE ()
     Route: 064
  2. ROSUVASTATIN. [Suspect]
     Active Substance: ROSUVASTATIN
     Indication: FOETAL EXPOSURE DURING PREGNANCY
     Dosage: UNK ()
     Route: 064
  3. IBUPROFEN. [Suspect]
     Active Substance: IBUPROFEN
     Dosage: CAPSULE ()
     Route: 064

REACTIONS (11)
  - Premature baby [Fatal]
  - Acute kidney injury [Fatal]
  - Foetal exposure during pregnancy [Fatal]
  - Cardiovascular insufficiency [Fatal]
  - Neonatal asphyxia [Fatal]
  - Foetal acidosis [Fatal]
  - Anuria [Fatal]
  - Respiratory failure [Fatal]
  - Foetal heart rate deceleration abnormality [Fatal]
  - Respiratory distress [Fatal]
  - Neonatal respiratory distress [Fatal]
